FAERS Safety Report 21156008 (Version 2)
Quarter: 2022Q3

REPORT INFORMATION
  Report Type: Spontaneous
  Country: JP (occurrence: JP)
  Receive Date: 20220801
  Receipt Date: 20220803
  Transmission Date: 20221027
  Serious: Yes (Death)
  Sender: FDA-Public Use
  Company Number: JP-KERYX BIOPHARMACEUTICALS INC.-JP-AKEB-22-021807

PATIENT

DRUGS (8)
  1. FERRIC CITRATE ANHYDROUS [Suspect]
     Active Substance: FERRIC CITRATE ANHYDROUS
     Indication: Hyperphosphataemia
     Dosage: 1500 MILLIGRAM
     Route: 048
     Dates: start: 20220315, end: 20220328
  2. FERRIC CITRATE ANHYDROUS [Suspect]
     Active Substance: FERRIC CITRATE ANHYDROUS
     Dosage: 1500 MILLIGRAM
     Route: 048
     Dates: start: 20220405, end: 20220419
  3. FERRIC CITRATE ANHYDROUS [Suspect]
     Active Substance: FERRIC CITRATE ANHYDROUS
     Dosage: 1500 MILLIGRAM
     Route: 048
     Dates: start: 20220425, end: 20220426
  4. FERRIC CITRATE ANHYDROUS [Suspect]
     Active Substance: FERRIC CITRATE ANHYDROUS
     Dosage: 1500 MILLIGRAM
     Route: 048
     Dates: start: 20220510, end: 20220530
  5. FERRIC CITRATE ANHYDROUS [Suspect]
     Active Substance: FERRIC CITRATE ANHYDROUS
     Dosage: 1500 MILLIGRAM
     Route: 048
     Dates: start: 20220607, end: 20220627
  6. FERRIC CITRATE ANHYDROUS [Suspect]
     Active Substance: FERRIC CITRATE ANHYDROUS
     Dosage: 2250 MILLIGRAM
     Route: 048
     Dates: start: 20220628
  7. FUTIBATINIB [Suspect]
     Active Substance: FUTIBATINIB
     Indication: Oesophageal carcinoma
     Dosage: 20 MILLIGRAM, ONCE DAILY
     Route: 048
     Dates: start: 20220308, end: 20220628
  8. PEMBROLIZUMAB [Suspect]
     Active Substance: PEMBROLIZUMAB
     Indication: Oesophageal carcinoma
     Dosage: 200 MILLIGRAM, EVERY THREE WEEKS
     Route: 042
     Dates: start: 20220308, end: 20220628

REACTIONS (1)
  - Death [Fatal]

NARRATIVE: CASE EVENT DATE: 20220707
